FAERS Safety Report 26183975 (Version 1)
Quarter: 2025Q4

REPORT INFORMATION
  Report Type: Spontaneous
  Country: US (occurrence: US)
  Receive Date: 20251222
  Receipt Date: 20251222
  Transmission Date: 20260117
  Serious: No
  Sender: SANDOZ
  Company Number: US-SANDOZ-SDZ2025US095717

PATIENT
  Age: 10 Year
  Sex: Male
  Weight: 27.75 kg

DRUGS (2)
  1. OMNITROPE [Suspect]
     Active Substance: SOMATROPIN
     Indication: Hypothalamo-pituitary disorder
     Dosage: 0.9 MG, QHS
     Dates: start: 20251114
  2. OMNITROPE [Suspect]
     Active Substance: SOMATROPIN

REACTIONS (1)
  - Heart rate increased [Unknown]

NARRATIVE: CASE EVENT DATE: 20250101
